FAERS Safety Report 5934332-2 (Version None)
Quarter: 2008Q4

REPORT INFORMATION
  Report Type: 
  Country: None (occurrence: None)
  Receive Date: 20081029
  Receipt Date: 20081021
  Transmission Date: 20090506
  Serious: Yes (Hospitalization)
  Sender: FDA-Public Use
  Company Number: PHHY2008JP24328

PATIENT
  Age: 71 Year
  Sex: Female

DRUGS (3)
  1. VOLTAREN [Suspect]
     Indication: RHEUMATOID ARTHRITIS
     Dosage: UNK
     Route: 054
  2. PREDONINE [Concomitant]
     Indication: RHEUMATOID ARTHRITIS
     Dosage: 2 MG PER DAY
     Route: 065
  3. RHEUMATREX [Concomitant]
     Indication: RHEUMATOID ARTHRITIS
     Dosage: 12 MG PER WEEK
     Route: 065

REACTIONS (15)
  - ANAL INFLAMMATION [None]
  - ANAL STENOSIS [None]
  - BIOPSY RECTUM ABNORMAL [None]
  - BIOPSY VAGINA [None]
  - BLADDER CATHETERISATION [None]
  - BLADDER DISORDER [None]
  - BODY TEMPERATURE INCREASED [None]
  - DEPRESSED LEVEL OF CONSCIOUSNESS [None]
  - EXCESSIVE GRANULATION TISSUE [None]
  - FAECAL INCONTINENCE [None]
  - FEMALE GENITAL TRACT FISTULA [None]
  - LARGE INTESTINE ANASTOMOSIS [None]
  - MICTURITION DISORDER [None]
  - RECTAL STENOSIS [None]
  - URINARY INCONTINENCE [None]
